FAERS Safety Report 22589063 (Version 1)
Quarter: 2023Q2

REPORT INFORMATION
  Report Type: Spontaneous
  Country: US (occurrence: None)
  Receive Date: 20230609
  Receipt Date: 20230609
  Transmission Date: 20230722
  Serious: Yes (Hospitalization, Other)
  Sender: FDA-Public Use
  Company Number: None

PATIENT
  Age: 33 Year
  Sex: Female

DRUGS (1)
  1. SAXENDA [Suspect]
     Active Substance: LIRAGLUTIDE
     Indication: Weight decreased
     Dosage: FREQUENCY : DAILY;?
     Route: 058

REACTIONS (2)
  - Cholelithiasis [None]
  - Cholecystectomy [None]

NARRATIVE: CASE EVENT DATE: 20230522
